FAERS Safety Report 4870349-7 (Version None)
Quarter: 2006Q1

REPORT INFORMATION
  Report Type: 
  Country: None (occurrence: None)
  Receive Date: 20060103
  Receipt Date: 20030408
  Transmission Date: 20060701
  Serious: Yes (Hospitalization)
  Sender: FDA-Public Use
  Company Number: US-BOEHRINGER INGELHEIM PHARM. INC.-2003-BP-02215BP

PATIENT
  Sex: Female
  Weight: 72.7 kg

DRUGS (5)
  1. MICARDIS [Suspect]
     Indication: ESSENTIAL HYPERTENSION
     Route: 048
     Dates: start: 20030401, end: 20030403
  2. MICARDIS [Suspect]
     Route: 048
     Dates: start: 20030318, end: 20030401
  3. LEVOXYL [Concomitant]
     Indication: HYPOTHYROIDISM
     Route: 048
  4. PREMARIN [Concomitant]
     Indication: HORMONE REPLACEMENT THERAPY
     Route: 048
  5. CITRACAL [Concomitant]

REACTIONS (6)
  - ASTHENIA [None]
  - DEHYDRATION [None]
  - MYALGIA [None]
  - PYREXIA [None]
  - SUPRAVENTRICULAR TACHYCARDIA [None]
  - TACHYCARDIA [None]
